FAERS Safety Report 12274746 (Version 4)
Quarter: 2016Q4

REPORT INFORMATION
  Report Type: Report from Study
  Country: DE (occurrence: DE)
  Receive Date: 20160415
  Receipt Date: 20161118
  Transmission Date: 20170207
  Serious: Yes (Other)
  Sender: FDA-Public Use
  Company Number: DE-BIOGEN-2016BI00177233

PATIENT
  Age: 29 Year
  Sex: Female

DRUGS (3)
  1. PLEGRIDY [Suspect]
     Active Substance: PEGINTERFERON BETA-1A
     Route: 058
     Dates: start: 201509
  2. PLEGRIDY [Suspect]
     Active Substance: PEGINTERFERON BETA-1A
     Indication: MULTIPLE SCLEROSIS
     Route: 058
     Dates: start: 20150904
  3. PLEGRIDY [Suspect]
     Active Substance: PEGINTERFERON BETA-1A
     Route: 065
     Dates: start: 201509

REACTIONS (9)
  - Post procedural inflammation [Not Recovered/Not Resolved]
  - Cancer surgery [Unknown]
  - Chemotherapy [Unknown]
  - Migraine [Not Recovered/Not Resolved]
  - Injection site induration [Not Recovered/Not Resolved]
  - Influenza like illness [Not Recovered/Not Resolved]
  - Impaired healing [Not Recovered/Not Resolved]
  - Hepatic adenoma [Not Recovered/Not Resolved]
  - Renal function test abnormal [Not Recovered/Not Resolved]

NARRATIVE: CASE EVENT DATE: 2015
